FAERS Safety Report 25924642 (Version 1)
Quarter: 2025Q4

REPORT INFORMATION
  Report Type: Spontaneous
  Country: EU (occurrence: EU)
  Receive Date: 20251015
  Receipt Date: 20251015
  Transmission Date: 20260118
  Serious: Yes (Hospitalization)
  Sender: MERCK SHARP & DOHME LLC
  Company Number: EU-AMK-291822

PATIENT
  Age: 65 Year
  Sex: Male
  Weight: 125 kg

DRUGS (2)
  1. KEYTRUDA [Suspect]
     Active Substance: PEMBROLIZUMAB
     Indication: Neoplasm malignant
     Dosage: 1X 100MG AMPULLE (CHARGE Z007371) UND 1X 100MG AMPULLE (Z010756)
     Dates: start: 20250902
  2. PADCEV [Suspect]
     Active Substance: ENFORTUMAB VEDOTIN-EJFV
     Indication: Transitional cell carcinoma
     Dosage: 02.09.2025: 2X 20MG AMPULLEN (CHARGE 2PA0246) UND 3X 30MG AMPULLEN (3PA0279)?09.09.2025: 2X 20MG ...
     Dates: start: 20250902, end: 20250909

REACTIONS (5)
  - Skin weeping [Not Recovered/Not Resolved]
  - Erythema [Not Recovered/Not Resolved]
  - Blister [Not Recovered/Not Resolved]
  - Body temperature increased [Not Recovered/Not Resolved]
  - Skin lesion [Not Recovered/Not Resolved]

NARRATIVE: CASE EVENT DATE: 20250913
